FAERS Safety Report 7287500-4 (Version None)
Quarter: 2011Q1

REPORT INFORMATION
  Report Type: 
  Country: None (occurrence: None)
  Receive Date: 20110211
  Receipt Date: 20110204
  Transmission Date: 20110831
  Serious: Yes (Hospitalization, Other)
  Sender: FDA-Public Use
  Company Number: MX-BRISTOL-MYERS SQUIBB COMPANY-15534233

PATIENT
  Age: 42 Year
  Sex: Male

DRUGS (6)
  1. ASPIRIN [Concomitant]
  2. BLINDED: SAXAGLIPTIN [Suspect]
     Indication: TYPE 2 DIABETES MELLITUS
     Dates: start: 20101016
  3. METFORMIN HCL [Suspect]
     Indication: TYPE 2 DIABETES MELLITUS
  4. NPH INSULIN [Suspect]
     Indication: TYPE 2 DIABETES MELLITUS
  5. PLACEBO [Suspect]
     Indication: TYPE 2 DIABETES MELLITUS
     Dates: start: 20101016
  6. GLIBENCLAMIDE [Suspect]
     Indication: TYPE 2 DIABETES MELLITUS

REACTIONS (1)
  - OESOPHAGEAL CANDIDIASIS [None]
